FAERS Safety Report 5749903-6 (Version None)
Quarter: 2008Q2

REPORT INFORMATION
  Report Type: 
  Country: None (occurrence: None)
  Receive Date: 20080520
  Receipt Date: 20080520
  Transmission Date: 20081010
  Serious: Yes (Hospitalization)
  Sender: FDA-Public Use
  Company Number: None

PATIENT
  Sex: Female
  Weight: 56 kg

DRUGS (6)
  1. ABRAXANE [Suspect]
     Indication: GASTRIC CANCER
     Dosage: 156 MG D1, D8, D15/CYCLE 042
     Dates: start: 20080512
  2. VANDETANIB [Suspect]
     Indication: GASTRIC CANCER
     Dosage: 100 MG QD 047
     Dates: start: 20080512, end: 20080514
  3. ALDACTONE [Concomitant]
  4. LASIX [Concomitant]
  5. VICODIN [Concomitant]
  6. TYLENOL [Concomitant]

REACTIONS (3)
  - ABDOMINAL PAIN [None]
  - NAUSEA [None]
  - VOMITING [None]
